FAERS Safety Report 14871559 (Version 4)
Quarter: 2018Q4

REPORT INFORMATION
  Report Type: Report from Study
  Country: US (occurrence: US)
  Receive Date: 20180509
  Receipt Date: 20181009
  Transmission Date: 20190204
  Serious: No
  Sender: FDA-Public Use
  Company Number: PHEH2018US017626

PATIENT
  Sex: Male

DRUGS (1)
  1. COSENTYX [Suspect]
     Active Substance: SECUKINUMAB
     Indication: PSORIATIC ARTHROPATHY
     Dosage: 150 MG, QMO
     Route: 058
     Dates: start: 201803

REACTIONS (6)
  - Psoriasis [Unknown]
  - Arthropod bite [Unknown]
  - Asthenia [Unknown]
  - Malaise [Recovering/Resolving]
  - Cough [Unknown]
  - Drug ineffective [Unknown]
